FAERS Safety Report 9341412 (Version 1)
Quarter: 2013Q2

REPORT INFORMATION
  Report Type: Report from Study
  Country: US (occurrence: US)
  Receive Date: 20130611
  Receipt Date: 20130611
  Transmission Date: 20140414
  Serious: Yes (Death)
  Sender: FDA-Public Use
  Company Number: US-ROCHE-1115920

PATIENT
  Age: 56 Year
  Sex: Male
  Weight: 96.8 kg

DRUGS (20)
  1. AVASTIN [Suspect]
     Indication: GLIOBLASTOMA
     Route: 042
     Dates: start: 20120808
  2. AVASTIN [Suspect]
     Route: 042
     Dates: start: 20120401, end: 20130220
  3. BUSPAR [Concomitant]
     Route: 048
  4. DILANTIN [Concomitant]
     Dosage: 300 MG A.M AND 400 MG P.M
     Route: 048
  5. VALPROIC ACID [Concomitant]
     Route: 048
  6. LORAZEPAM [Concomitant]
     Route: 065
  7. MS CONTIN [Concomitant]
     Route: 048
  8. MSIR [Concomitant]
     Dosage: 1-2 EVERY 4 HOURS PRN
     Route: 065
  9. SERTRALINE [Concomitant]
     Route: 048
  10. COUMADIN [Concomitant]
     Indication: DEEP VEIN THROMBOSIS
     Dosage: 1-1/2
     Route: 065
  11. DOXYCYCLINE [Concomitant]
  12. OMEPRAZOLE [Concomitant]
     Route: 065
  13. POTASSIUM CHLORIDE [Concomitant]
     Route: 065
  14. L-CARNITINE [Concomitant]
  15. LOSARTAN [Concomitant]
     Route: 065
  16. AMLODIPINE [Concomitant]
     Route: 065
  17. HYDROCHLOROTHIAZIDE [Concomitant]
     Route: 065
  18. VITAMIN D3 [Concomitant]
     Route: 065
  19. TRAZODONE [Concomitant]
     Route: 065
  20. BACTRIM [Concomitant]
     Route: 065

REACTIONS (5)
  - Haemorrhage intracranial [Fatal]
  - Coagulopathy [Fatal]
  - Fatigue [Not Recovered/Not Resolved]
  - Hyperaesthesia [Not Recovered/Not Resolved]
  - Burning sensation [Not Recovered/Not Resolved]
